FAERS Safety Report 4654049-4 (Version None)
Quarter: 2005Q2

REPORT INFORMATION
  Report Type: 
  Country: None (occurrence: None)
  Receive Date: 20050504
  Receipt Date: 20050426
  Transmission Date: 20051028
  Serious: Yes (Hospitalization)
  Sender: FDA-Public Use
  Company Number: 2005-03-1671

PATIENT
  Age: 63 Year
  Sex: Male
  Weight: 55 kg

DRUGS (4)
  1. PEG-INTRON [Suspect]
     Indication: HEPATITIS C
     Dosage: 80 MCG QW SUBCUTANEOUS
     Route: 058
     Dates: start: 20050218, end: 20050304
  2. REBETOL [Suspect]
     Indication: HEPATITIS C
     Dosage: 600 MG ORAL
     Route: 048
     Dates: start: 20050218, end: 20050311
  3. REBAMIPIDE [Concomitant]
  4. URSO [Concomitant]

REACTIONS (2)
  - LOBAR PNEUMONIA [None]
  - PLEURISY [None]
